FAERS Safety Report 13157778 (Version 2)
Quarter: 2017Q2

REPORT INFORMATION
  Report Type: Spontaneous
  Country: US (occurrence: US)
  Receive Date: 20170127
  Receipt Date: 20170411
  Transmission Date: 20170830
  Serious: Yes (Hospitalization)
  Sender: FDA-Public Use
  Company Number: US-JNJFOC-20170103249

PATIENT
  Age: 50 Year
  Sex: Female
  Weight: 64.86 kg

DRUGS (1)
  1. REMICADE [Suspect]
     Active Substance: INFLIXIMAB
     Indication: CROHN^S DISEASE
     Dosage: 0,2 WEEKS
     Route: 042

REACTIONS (2)
  - Diarrhoea [Unknown]
  - Pneumonia viral [Recovered/Resolved]
